FAERS Safety Report 11343668 (Version 1)
Quarter: 2015Q3

REPORT INFORMATION
  Report Type: Spontaneous
  Country: US (occurrence: None)
  Receive Date: 20150804
  Receipt Date: 20150804
  Transmission Date: 20151125
  Serious: Yes (Other)
  Sender: FDA-Public Use
  Company Number: TPU2015-00389

PATIENT
  Age: 91 Year
  Sex: Female
  Weight: 57.61 kg

DRUGS (3)
  1. LIDOCAINE PATCH 5% (QUALITEST) (LIDOCAINE PATCH 5%) (5 PERCENT, POULTICE OR PATCH) [Suspect]
     Active Substance: LIDOCAINE
     Indication: BACK PAIN
     Dosage: LONG TIME, ALMOST 20 YEARS?T PLASTER, TOPICAL
     Route: 061
  2. TYLENOL [Concomitant]
     Active Substance: ACETAMINOPHEN
  3. NEURONTIN [Concomitant]
     Active Substance: GABAPENTIN

REACTIONS (6)
  - Fractured sacrum [None]
  - Lumbar vertebral fracture [None]
  - Thoracic vertebral fracture [None]
  - Blood sodium decreased [None]
  - Neuropathy peripheral [None]
  - Spinal compression fracture [None]

NARRATIVE: CASE EVENT DATE: 2005
